FAERS Safety Report 25929802 (Version 1)
Quarter: 2025Q4

REPORT INFORMATION
  Report Type: Spontaneous
  Country: RU (occurrence: RU)
  Receive Date: 20251016
  Receipt Date: 20251016
  Transmission Date: 20260118
  Serious: Yes (Other)
  Sender: ROCHE
  Company Number: RU-ROCHE-10000409129

PATIENT
  Age: 86 Year
  Sex: Male

DRUGS (1)
  1. ATEZOLIZUMAB [Suspect]
     Active Substance: ATEZOLIZUMAB
     Indication: Product used for unknown indication
     Dosage: DAY 1 OF A 21-DAY CYCLE
     Route: 042
     Dates: start: 20240925

REACTIONS (2)
  - Metastases to lymph nodes [Unknown]
  - Therapy partial responder [Unknown]
